FAERS Safety Report 5597796-2 (Version None)
Quarter: 2007Q4

REPORT INFORMATION
  Report Type: 
  Country: None (occurrence: None)
  Receive Date: 20071221
  Receipt Date: 20071018
  Transmission Date: 20080405
  Serious: No
  Sender: FDA-Public Use
  Company Number: SPV1-2007-04633

PATIENT

DRUGS (1)
  1. VYVANSE [Suspect]
     Dosage: 30 MG, 1X/DAY:QD, ORAL
     Route: 048
     Dates: start: 20070101, end: 20070101

REACTIONS (3)
  - DECREASED APPETITE [None]
  - LETHARGY [None]
  - VOMITING [None]
